FAERS Safety Report 5263400-6 (Version None)
Quarter: 2007Q1

REPORT INFORMATION
  Report Type: 
  Country: None (occurrence: None)
  Receive Date: 20070313
  Receipt Date: 20070308
  Transmission Date: 20070707
  Serious: Yes (Death)
  Sender: FDA-Public Use
  Company Number: PHHO2004JP17514

PATIENT
  Age: 52 Year
  Sex: Male
  Weight: 57 kg

DRUGS (12)
  1. DIOVAN [Suspect]
     Indication: HYPERTENSION
     Dosage: 40 MG, QD
     Dates: start: 20030422, end: 20040414
  2. DIOVAN [Suspect]
     Dosage: 80 MG, QD
     Dates: start: 20040415
  3. HALCION [Concomitant]
     Indication: INSOMNIA
  4. ADALAT [Concomitant]
     Indication: HYPERTENSION
  5. CYANOCOBALAMIN [Concomitant]
     Indication: DIABETIC NEUROPATHY
  6. EPADEL [Concomitant]
     Indication: HYPERLIPIDAEMIA
  7. KINEDAK [Concomitant]
     Indication: DIABETIC NEUROPATHY
  8. LENDORMIN [Concomitant]
     Indication: INSOMNIA
  9. INSULIN [Concomitant]
     Indication: DIABETES MELLITUS
  10. NORVASC [Concomitant]
     Indication: HYPERTENSION
  11. LASIX [Concomitant]
  12. GASTER [Concomitant]
     Indication: GASTRITIS

REACTIONS (1)
  - CARDIOVASCULAR DISORDER [None]
